FAERS Safety Report 11523999 (Version 1)
Quarter: 2015Q3

REPORT INFORMATION
  Report Type: Spontaneous
  Country: US (occurrence: US)
  Receive Date: 20150903
  Receipt Date: 20150903
  Transmission Date: 20151125
  Serious: No
  Sender: FDA-Public Use
  Company Number: US-ELI_LILLY_AND_COMPANY-US201304002764

PATIENT
  Age: 55 Year
  Sex: Female

DRUGS (2)
  1. CYMBALTA [Suspect]
     Active Substance: DULOXETINE HYDROCHLORIDE
     Indication: DEPRESSION
     Dosage: 30 MG, QD
     Dates: start: 201301
  2. CYMBALTA [Suspect]
     Active Substance: DULOXETINE HYDROCHLORIDE
     Dosage: 20 MG, QD
     Dates: start: 201302

REACTIONS (8)
  - Dyspepsia [Recovering/Resolving]
  - Intentional product misuse [Unknown]
  - Food craving [Unknown]
  - Abdominal rigidity [Recovering/Resolving]
  - Abdominal discomfort [Recovering/Resolving]
  - Bowel movement irregularity [Recovering/Resolving]
  - Flatulence [Recovering/Resolving]
  - Weight increased [Unknown]
